FAERS Safety Report 9069219 (Version 2)
Quarter: 2013Q1

REPORT INFORMATION
  Report Type: Spontaneous
  Country: US (occurrence: US)
  Receive Date: 20130215
  Receipt Date: 20130228
  Transmission Date: 20140127
  Serious: Yes (Other)
  Sender: FDA-Public Use
  Company Number: US-BAYER-2013-019787

PATIENT
  Age: 83 Year
  Sex: Female

DRUGS (2)
  1. GADAVIST [Suspect]
     Indication: NUCLEAR MAGNETIC RESONANCE IMAGING BRAIN
     Dosage: 8.5 ML, UNK
     Dates: start: 20130212
  2. GADAVIST [Suspect]
     Indication: HAEMORRHAGIC STROKE

REACTIONS (5)
  - Confusional state [None]
  - Disorientation [None]
  - Rash erythematous [None]
  - Pruritus generalised [None]
  - Hyperhidrosis [None]
